FAERS Safety Report 9563010 (Version 1)
Quarter: 2013Q3

REPORT INFORMATION
  Report Type: Spontaneous
  Country: PL (occurrence: PL)
  Receive Date: 20130927
  Receipt Date: 20130927
  Transmission Date: 20140515
  Serious: Yes (Other)
  Sender: FDA-Public Use
  Company Number: PHHY2013PL105466

PATIENT
  Age: 62 Year
  Sex: Female

DRUGS (5)
  1. DONEPEZIL [Suspect]
     Indication: DEMENTIA ALZHEIMER^S TYPE
     Dosage: 5 MG, UNK
     Dates: start: 2007
  2. DONEPEZIL [Suspect]
     Dosage: 10 MG, UNK
  3. DONEPEZIL [Suspect]
     Dosage: 5 MG, BID
  4. DONEPEZIL [Suspect]
     Dosage: 10 MG, QD
  5. PARACETAMOL [Concomitant]

REACTIONS (11)
  - Delirium [Recovered/Resolved]
  - Disorientation [Recovered/Resolved]
  - Anxiety [Recovered/Resolved]
  - Dementia [Recovered/Resolved]
  - Altered state of consciousness [Recovered/Resolved]
  - Hallucination [Recovered/Resolved]
  - Insomnia [Recovered/Resolved]
  - Agitation [Recovered/Resolved]
  - Abdominal pain upper [Recovered/Resolved]
  - Decreased appetite [Recovered/Resolved]
  - Withdrawal syndrome [Recovered/Resolved]
